FAERS Safety Report 11362082 (Version 1)
Quarter: 2015Q3

REPORT INFORMATION
  Report Type: Report from Study
  Country: US (occurrence: US)
  Receive Date: 20150810
  Receipt Date: 20150810
  Transmission Date: 20151125
  Serious: Yes (Hospitalization)
  Sender: FDA-Public Use
  Company Number: US-ABBVIE-15P-163-1439379-00

PATIENT
  Age: 72 Year
  Sex: Female
  Weight: 119.4 kg

DRUGS (2)
  1. VIEKIRA PAK [Suspect]
     Active Substance: DASABUVIR\OMBITASVIR\PARITAPREVIR\RITONAVIR
     Dosage: PER MANUFACTURERES PACKAGING DIRECTION IN AM AND PM
     Route: 048
     Dates: start: 20150731
  2. VIEKIRA PAK [Suspect]
     Active Substance: DASABUVIR\OMBITASVIR\PARITAPREVIR\RITONAVIR
     Indication: HEPATITIS C
     Dosage: PER MANUFACTURERES PACKAGING DIRECTION IN AM AND PM
     Route: 048
     Dates: start: 20150709, end: 20150713

REACTIONS (3)
  - Urinary tract infection [Recovering/Resolving]
  - Feeling abnormal [Recovering/Resolving]
  - Fatigue [Unknown]

NARRATIVE: CASE EVENT DATE: 20150713
